FAERS Safety Report 9109048 (Version 1)
Quarter: 2013Q1

REPORT INFORMATION
  Report Type: Spontaneous
  Country: US (occurrence: US)
  Receive Date: 20130222
  Receipt Date: 20130222
  Transmission Date: 20140127
  Serious: Yes (Hospitalization)
  Sender: FDA-Public Use
  Company Number: US-GLAXOSMITHKLINE-A1012243A

PATIENT
  Age: 77 Year
  Sex: Male

DRUGS (16)
  1. ADVAIR [Suspect]
     Indication: CHRONIC OBSTRUCTIVE PULMONARY DISEASE
     Dosage: 1PUFF TWICE PER DAY
     Route: 055
     Dates: start: 2007
  2. ALBUTEROL [Concomitant]
  3. AEROSOL [Concomitant]
  4. ERYTHROMYCIN [Concomitant]
  5. PREDNISONE [Concomitant]
  6. SPIRIVA [Concomitant]
  7. PRAVASTATIN [Concomitant]
  8. LEXAPRO [Concomitant]
  9. METFORMIN [Concomitant]
  10. BYSTOLIC [Concomitant]
  11. LOSARTAN [Concomitant]
  12. VITAMIN C [Concomitant]
  13. CO-ENZYME Q 10 [Concomitant]
  14. BABY ASPIRIN [Concomitant]
  15. UNKNOWN [Concomitant]
  16. L-GLUTAMINE [Concomitant]

REACTIONS (3)
  - Dry mouth [Unknown]
  - Thirst [Unknown]
  - Cough [Unknown]
